FAERS Safety Report 9386509 (Version 1)
Quarter: 2013Q3

REPORT INFORMATION
  Report Type: Spontaneous
  Country: US (occurrence: US)
  Receive Date: 20130708
  Receipt Date: 20130708
  Transmission Date: 20140515
  Serious: Yes (Hospitalization)
  Sender: FDA-Public Use
  Company Number: US-BRISTOL-MYERS SQUIBB COMPANY-19065051

PATIENT
  Sex: Male

DRUGS (1)
  1. ELIQUIS [Suspect]
     Dates: start: 20130625

REACTIONS (2)
  - Haematuria [Unknown]
  - Oedema [Unknown]
